FAERS Safety Report 11457332 (Version 1)
Quarter: 2015Q3

REPORT INFORMATION
  Report Type: Spontaneous
  Country: US (occurrence: None)
  Receive Date: 20150902
  Receipt Date: 20150902
  Transmission Date: 20151125
  Serious: Yes (Hospitalization, Other)
  Sender: FDA-Public Use
  Company Number: US-ZYDUS-008897

PATIENT
  Age: 21 Year
  Sex: Male

DRUGS (6)
  1. PIPERACILLIN AND TAZOBACTAM [Suspect]
     Active Substance: PIPERACILLIN SODIUM\TAZOBACTAM SODIUM
     Indication: PRODUCT USED FOR UNKNOWN INDICATION
  2. OXYCODONE HCL [Suspect]
     Active Substance: OXYCODONE HYDROCHLORIDE
     Indication: PRODUCT USED FOR UNKNOWN INDICATION
  3. LORAZEPAM (LORAZEPAM) [Suspect]
     Active Substance: LORAZEPAM
     Indication: ANXIETY
  4. DIAMORPHINE (DIAMORPHINE) [Suspect]
     Active Substance: DIACETYLMORPHINE
     Indication: PRODUCT USED FOR UNKNOWN INDICATION
     Route: 045
  5. OXYMORPHONE HYDROCHLORIDE (OXYMORPHONE HYDROCHLORIDE) (OXYMORHONE HYDROCHLORIDE) [Suspect]
     Active Substance: OXYMORPHONE HYDROCHLORIDE
     Indication: PRODUCT USED FOR UNKNOWN INDICATION
  6. HALOPERIDOL (HALOPERIDOL) (HALOPERIDOL) [Suspect]
     Active Substance: HALOPERIDOL
     Indication: PRODUCT USED FOR UNKNOWN INDICATION
     Route: 042

REACTIONS (22)
  - Dyspnoea [None]
  - Dystonia [None]
  - Delirium [None]
  - Rhabdomyolysis [None]
  - Muscle spasms [None]
  - Acute kidney injury [None]
  - Agitation [None]
  - Drug withdrawal syndrome [None]
  - Pharyngeal oedema [None]
  - Pneumomediastinum [None]
  - Confusional state [None]
  - Vomiting [None]
  - Incoherent [None]
  - Chills [None]
  - Somnolence [None]
  - Hyperhidrosis [None]
  - Piloerection [None]
  - Oesophageal rupture [None]
  - Substance abuse [None]
  - Nausea [None]
  - Anxiety [None]
  - Akathisia [None]
